FAERS Safety Report 8373887-8 (Version None)
Quarter: 2012Q2

REPORT INFORMATION
  Report Type: 
  Country: None (occurrence: None)
  Receive Date: 20120517
  Receipt Date: 20120503
  Transmission Date: 20120825
  Serious: Yes (Other)
  Sender: FDA-Public Use
  Company Number: EU-2012-10139

PATIENT
  Age: 60 Year
  Sex: Female

DRUGS (2)
  1. SAMSCA [Suspect]
     Indication: INAPPROPRIATE ANTIDIURETIC HORMONE SECRETION
     Dosage: 15 MG MILLIGRAM(S), QD, ORAL
     Route: 048
  2. SAMSCA [Suspect]
     Indication: HYPONATRAEMIA
     Dosage: 15 MG MILLIGRAM(S), QD, ORAL
     Route: 048

REACTIONS (7)
  - CONVULSION [None]
  - CONFUSIONAL STATE [None]
  - RAPID CORRECTION OF HYPONATRAEMIA [None]
  - CONDITION AGGRAVATED [None]
  - COMA SCALE ABNORMAL [None]
  - BRAIN OEDEMA [None]
  - SOMNOLENCE [None]
